FAERS Safety Report 11860461 (Version 1)
Quarter: 2015Q4

REPORT INFORMATION
  Report Type: Spontaneous
  Country: JP (occurrence: JP)
  Receive Date: 20151222
  Receipt Date: 20151222
  Transmission Date: 20160305
  Serious: Yes (Other)
  Sender: FDA-Public Use
  Company Number: JP-MALLINCKRODT-T201506043

PATIENT
  Age: 71 Year
  Sex: Male

DRUGS (7)
  1. LYRICA [Concomitant]
     Active Substance: PREGABALIN
  2. NEXIUM [Concomitant]
     Active Substance: ESOMEPRAZOLE MAGNESIUM
  3. BIO-THREE [Concomitant]
     Active Substance: HERBALS
  4. SENNOSIDE [Concomitant]
     Active Substance: SENNOSIDES
  5. METHADONE [Suspect]
     Active Substance: METHADONE HYDROCHLORIDE
     Indication: CANCER PAIN
     Dosage: 45 MG DAILY DOSE
     Route: 048
     Dates: start: 20151211, end: 20151214
  6. CELECOX [Concomitant]
     Active Substance: CELECOXIB
  7. METHADONE [Suspect]
     Active Substance: METHADONE HYDROCHLORIDE
     Dosage: 30 MG DAILY DOSE
     Route: 048
     Dates: start: 20151204, end: 20151210

REACTIONS (1)
  - Delirium [Unknown]

NARRATIVE: CASE EVENT DATE: 20151214
